FAERS Safety Report 6422779-X (Version None)
Quarter: 2009Q4

REPORT INFORMATION
  Report Type: 
  Country: None (occurrence: None)
  Receive Date: 20091102
  Receipt Date: 20091021
  Transmission Date: 20100525
  Serious: No
  Sender: FDA-Public Use
  Company Number: JP-NOVOPROD-292411

PATIENT
  Age: 46 Year
  Sex: Male

DRUGS (1)
  1. NOVOLIN R [Suspect]
     Indication: DIABETES MELLITUS

REACTIONS (3)
  - ANTI-INSULIN ANTIBODY [None]
  - HYPERGLYCAEMIA [None]
  - HYPOGLYCAEMIA [None]
